FAERS Safety Report 7743083-3 (Version None)
Quarter: 2011Q3

REPORT INFORMATION
  Report Type: 
  Country: None (occurrence: None)
  Receive Date: 20110912
  Receipt Date: 20110829
  Transmission Date: 20111222
  Serious: Yes (Hospitalization)
  Sender: FDA-Public Use
  Company Number: US-ELI_LILLY_AND_COMPANY-US201109000325

PATIENT
  Age: 62 Year
  Sex: Female

DRUGS (3)
  1. FORTEO [Suspect]
     Indication: OSTEOPOROSIS
     Dosage: 20 UG, QD
     Dates: end: 20110824
  2. AZOR [Concomitant]
     Indication: HYPERTENSION
  3. SYNTHROID [Concomitant]

REACTIONS (3)
  - CLOSTRIDIAL INFECTION [None]
  - ABDOMINAL PAIN [None]
  - DIARRHOEA [None]
